FAERS Safety Report 9632072 (Version 2)
Quarter: 2013Q4

REPORT INFORMATION
  Report Type: Spontaneous
  Country: US (occurrence: US)
  Receive Date: 20131018
  Receipt Date: 20131108
  Transmission Date: 20140711
  Serious: Yes (Other)
  Sender: FDA-Public Use
  Company Number: GXBR2013US001825

PATIENT
  Age: 66 Year
  Sex: Female

DRUGS (2)
  1. AZITHROMYCIN 250 MG [Suspect]
     Indication: UPPER RESPIRATORY TRACT INFECTION
     Dosage: 250 MG, ONCE2SDO
     Route: 048
     Dates: start: 201210, end: 201210
  2. AZITHROMYCIN 250 MG [Suspect]
     Dosage: 250 MG, QD
     Route: 048
     Dates: start: 201210, end: 201210

REACTIONS (9)
  - Age-related macular degeneration [Not Recovered/Not Resolved]
  - Optic disc drusen [Not Recovered/Not Resolved]
  - Cataract [Not Recovered/Not Resolved]
  - Vision blurred [Not Recovered/Not Resolved]
  - Eyelid disorder [Not Recovered/Not Resolved]
  - Urticaria [Recovered/Resolved]
  - Presbyopia [Not Recovered/Not Resolved]
  - Hypermetropia [Not Recovered/Not Resolved]
  - Astigmatism [Not Recovered/Not Resolved]
